FAERS Safety Report 8199359-1 (Version None)
Quarter: 2012Q1

REPORT INFORMATION
  Report Type: 
  Country: None (occurrence: None)
  Receive Date: 20120309
  Receipt Date: 20120306
  Transmission Date: 20120608
  Serious: Yes (Other)
  Sender: FDA-Public Use
  Company Number: US-PFIZER INC-2012060236

PATIENT
  Sex: Female
  Weight: 66.213 kg

DRUGS (4)
  1. TRAZODONE [Concomitant]
     Indication: DEPRESSION
     Dosage: 100 MG, 1X/DAY
  2. HYDROCODONE [Concomitant]
     Indication: BACK PAIN
     Dosage: ^7.5/750 MG^, 2X/DAY
  3. METHADONE [Concomitant]
     Indication: BACK PAIN
     Dosage: 50 MG, DAILY
  4. XANAX [Suspect]
     Indication: DEPRESSION
     Dosage: 2 MG, UNK
     Route: 048
     Dates: end: 20120201

REACTIONS (6)
  - BLOOD PRESSURE ABNORMAL [None]
  - FOOT OPERATION [None]
  - GASTRIC DISORDER [None]
  - DIABETES MELLITUS [None]
  - SLEEP DISORDER [None]
  - BLOOD CHOLESTEROL INCREASED [None]
